FAERS Safety Report 6737295-5 (Version None)
Quarter: 2010Q2

REPORT INFORMATION
  Report Type: 
  Country: None (occurrence: None)
  Receive Date: 20100524
  Receipt Date: 20100514
  Transmission Date: 20101027
  Serious: No
  Sender: FDA-Public Use
  Company Number: US-BIOGENIDEC-2010BI016275

PATIENT
  Sex: Female

DRUGS (1)
  1. AVONEX [Suspect]
     Indication: MULTIPLE SCLEROSIS
     Route: 030
     Dates: start: 20040519

REACTIONS (5)
  - ADVERSE DRUG REACTION [None]
  - FATIGUE [None]
  - GAIT DISTURBANCE [None]
  - THYROID DISORDER [None]
  - URINARY INCONTINENCE [None]
